FAERS Safety Report 15822602 (Version 2)
Quarter: 2019Q1

REPORT INFORMATION
  Report Type: Report from Study
  Country: GB (occurrence: GB)
  Receive Date: 20190114
  Receipt Date: 20190204
  Transmission Date: 20190417
  Serious: Yes (Death)
  Sender: FDA-Public Use
  Company Number: GB-SAKK-2019SA004188AA

PATIENT
  Sex: Female

DRUGS (8)
  1. FLUOROURACIL. [Suspect]
     Active Substance: FLUOROURACIL
     Dosage: 500 MG/M2, QCY ON DAY 1 OF CYCLE 5-8
     Route: 040
  2. CYCLOPHOSPHAMIDE. [Suspect]
     Active Substance: CYCLOPHOSPHAMIDE
     Indication: HER-2 POSITIVE BREAST CANCER
     Dosage: 500 MG/M2, QCY INFUSION
     Route: 040
  3. DOCETAXEL. [Suspect]
     Active Substance: DOCETAXEL
     Indication: HER-2 POSITIVE BREAST CANCER
     Dosage: 75 MG/M2, QCY
     Route: 042
  4. TRASTUZUMAB. [Suspect]
     Active Substance: TRASTUZUMAB
     Indication: HER-2 POSITIVE BREAST CANCER
     Dosage: 8 MG/KG, Q3W LOADING DOSEON DAY 1 OF CYCLE 1EIGHT CYCLES, EACH LASTING 3 WEEKS, FOR 24 WEEKS
     Route: 042
  5. FLUOROURACIL. [Suspect]
     Active Substance: FLUOROURACIL
     Indication: HER-2 POSITIVE BREAST CANCER
     Dosage: 500 MG/M2, QCY ON DAY 1 OF CYCLE 5-8
     Route: 042
  6. EPIRUBICIN [Suspect]
     Active Substance: EPIRUBICIN
     Indication: HER-2 POSITIVE BREAST CANCER
     Dosage: 75 MG/M2, QCY ON DAY 1 OF CYCLE 5-8
     Route: 040
  7. EPIRUBICIN [Suspect]
     Active Substance: EPIRUBICIN
     Dosage: 75 MG/M2, QCY ON DAY 1 OF CYCLE 5-8
     Route: 042
  8. TRASTUZUMAB. [Suspect]
     Active Substance: TRASTUZUMAB
     Dosage: 6 MG/KG, Q3W ON DAY 1 OF CYCLE 2-8 EIGHT CYCLES, EACH LASTING 3 WEEKS, FOR 24 WEEKS
     Route: 042

REACTIONS (1)
  - Acute myocardial infarction [Fatal]
